FAERS Safety Report 20108351 (Version 3)
Quarter: 2021Q4

REPORT INFORMATION
  Report Type: Spontaneous
  Country: PL (occurrence: PL)
  Receive Date: 20211124
  Receipt Date: 20211229
  Transmission Date: 20220303
  Serious: Yes (Other)
  Sender: FDA-Public Use
  Company Number: PL-BAYER-2021A252881

PATIENT

DRUGS (1)
  1. EYLEA [Suspect]
     Active Substance: AFLIBERCEPT
     Indication: Product used for unknown indication
     Dosage: TOTAL OF 6 EYLEA DOSES, LAST DOSE PRIOR THE EVENT WAS RECEIVED ON 31-AUG-2021
     Dates: start: 20210316

REACTIONS (5)
  - Vitreous opacities [Unknown]
  - Endophthalmitis [Unknown]
  - Eye pain [Unknown]
  - Visual impairment [Unknown]
  - Ocular hyperaemia [Unknown]

NARRATIVE: CASE EVENT DATE: 20211021
